FAERS Safety Report 16720751 (Version 1)
Quarter: 2019Q3

REPORT INFORMATION
  Report Type: Spontaneous
  Country: DE (occurrence: DE)
  Receive Date: 20190820
  Receipt Date: 20190820
  Transmission Date: 20191005
  Serious: Yes (Other)
  Sender: FDA-Public Use
  Company Number: DE-JNJFOC-20190817744

PATIENT
  Age: 78 Year
  Sex: Male
  Weight: 65 kg

DRUGS (14)
  1. CAELYX [Suspect]
     Active Substance: DOXORUBICIN HYDROCHLORIDE
     Indication: DIFFUSE LARGE B-CELL LYMPHOMA
     Dosage: 1ST LINE THERAPY, ACCORDING TO R-CHOP REGIMEN, 6 CYCLES
     Route: 065
     Dates: start: 201810, end: 201812
  2. PIXANTRONE [Suspect]
     Active Substance: PIXANTRONE
     Indication: DIFFUSE LARGE B-CELL LYMPHOMA
     Dosage: FURTHER LINE THERAPY, ACCORDING TO R-PIXANTRONE REGIMEN, 1 CYCLE
     Route: 065
     Dates: start: 201905, end: 201905
  3. OXALIPLATIN. [Suspect]
     Active Substance: OXALIPLATIN
     Indication: DIFFUSE LARGE B-CELL LYMPHOMA
     Route: 065
     Dates: start: 201904, end: 201904
  4. MABTHERA [Suspect]
     Active Substance: RITUXIMAB
     Indication: DIFFUSE LARGE B-CELL LYMPHOMA
     Dosage: 2ND LINE THERAPY, ACCORDING TO R-GEMOX THERAPY, 1 CYCLE
     Route: 065
     Dates: start: 201904, end: 201904
  5. MABTHERA [Suspect]
     Active Substance: RITUXIMAB
     Dosage: FURTHER LINE THERAPY, ACCORDING TO R-ICE REGIMEN, 1 CYCLE
     Route: 065
     Dates: start: 201905, end: 201905
  6. GEMCITABINE. [Suspect]
     Active Substance: GEMCITABINE
     Indication: DIFFUSE LARGE B-CELL LYMPHOMA
     Dosage: FURTHER LINE THERAPY, ACCORDING TO R-ICE REGIMEN, 1 CYCLE
     Route: 065
     Dates: start: 201904, end: 201904
  7. MABTHERA [Suspect]
     Active Substance: RITUXIMAB
     Dosage: 1ST LINE THERAPY, ACCORDING TO R-CHOP REGIMEN, 6 CYCLES
     Route: 065
     Dates: start: 201810, end: 201812
  8. CARBOPLATIN. [Suspect]
     Active Substance: CARBOPLATIN
     Indication: DIFFUSE LARGE B-CELL LYMPHOMA
     Route: 065
     Dates: start: 201905, end: 201905
  9. VINCRISTINE [Suspect]
     Active Substance: VINCRISTINE
     Indication: DIFFUSE LARGE B-CELL LYMPHOMA
     Dosage: 2ND LINE THERAPY, ACCORDING TO R-GEMOX REGIMEN, 1 CYCLE
     Route: 065
     Dates: start: 201810, end: 201812
  10. MABTHERA [Suspect]
     Active Substance: RITUXIMAB
     Dosage: FURTHER LINE THERAPY, ACCORDING TO R-PIXANTRONE REGIMEN, 1 CYCLE
     Route: 065
     Dates: start: 201905, end: 201905
  11. IFOSFAMIDE. [Suspect]
     Active Substance: IFOSFAMIDE
     Indication: DIFFUSE LARGE B-CELL LYMPHOMA
     Route: 065
     Dates: start: 201905, end: 201905
  12. PREDNISONE. [Suspect]
     Active Substance: PREDNISONE
     Indication: DIFFUSE LARGE B-CELL LYMPHOMA
     Dosage: 1ST LINE THERAPY, ACCORDING TO R-CHOP REGIMEN, 6 CYCLES
     Route: 065
     Dates: start: 201810, end: 201812
  13. CYCLOPHOSPHAMIDE. [Suspect]
     Active Substance: CYCLOPHOSPHAMIDE
     Indication: DIFFUSE LARGE B-CELL LYMPHOMA
     Dosage: 1ST LINE THERAPY, ACCORDING TO R-CHOP REGIMEN, 6 CYCLES
     Route: 065
     Dates: start: 201810, end: 201812
  14. ETOPOSIDE. [Suspect]
     Active Substance: ETOPOSIDE
     Indication: DIFFUSE LARGE B-CELL LYMPHOMA
     Dosage: FURTHER LINE THERAPY, ACCORDING TO R-ICE REGIMEN, 1 CYCLE
     Route: 065
     Dates: start: 201905, end: 201905

REACTIONS (5)
  - Off label use [Unknown]
  - Platelet count decreased [Recovering/Resolving]
  - Product use in unapproved indication [Unknown]
  - Neurotoxicity [Unknown]
  - Infection [Unknown]

NARRATIVE: CASE EVENT DATE: 201810
